FAERS Safety Report 6143637-4 (Version None)
Quarter: 2009Q2

REPORT INFORMATION
  Report Type: 
  Country: None (occurrence: None)
  Receive Date: 20090403
  Receipt Date: 20090324
  Transmission Date: 20091009
  Serious: Yes (Other)
  Sender: FDA-Public Use
  Company Number: ZA-JNJCH-2009003609

PATIENT
  Age: 41 Year
  Sex: Female

DRUGS (2)
  1. SINUTAB SINUS ALLERGY [Suspect]
     Indication: SINUSITIS
     Dosage: TEXT:ONE TABLET TAKEN DAILY IN THE MORNING
     Route: 048
     Dates: start: 20090119, end: 20090119
  2. SINUTAB SINUS ALLERGY [Suspect]
     Dosage: TEXT:ONE TABLET AT NIGHT AFTER SUPPER
     Route: 048
     Dates: start: 20090203, end: 20090203

REACTIONS (7)
  - DIZZINESS [None]
  - HANGOVER [None]
  - INCOHERENT [None]
  - MIGRAINE [None]
  - PALLOR [None]
  - SENSORY DISTURBANCE [None]
  - SYNCOPE [None]
